FAERS Safety Report 8199348-7 (Version None)
Quarter: 2012Q1

REPORT INFORMATION
  Report Type: 
  Country: None (occurrence: None)
  Receive Date: 20120309
  Receipt Date: 20120306
  Transmission Date: 20120608
  Serious: Yes (Other)
  Sender: FDA-Public Use
  Company Number: DE-PFIZER INC-2012049464

PATIENT
  Age: 47 Year
  Sex: Male
  Weight: 98 kg

DRUGS (1)
  1. VARENICLINE TARTRATE [Suspect]
     Indication: SMOKING CESSATION THERAPY
     Dosage: 1 MG PER DAY (TABLET)
     Dates: start: 20111102, end: 20120130

REACTIONS (7)
  - ABNORMAL BEHAVIOUR [None]
  - FLATULENCE [None]
  - FEELING ABNORMAL [None]
  - AGGRESSION [None]
  - APATHY [None]
  - SOCIAL AVOIDANT BEHAVIOUR [None]
  - SLEEP DISORDER [None]
